FAERS Safety Report 4506392-7 (Version None)
Quarter: 2004Q4

REPORT INFORMATION
  Report Type: 
  Country: None (occurrence: None)
  Receive Date: 20041025
  Receipt Date: 20040316
  Transmission Date: 20050328
  Serious: Yes (Life-Threatening, Hospitalization, Other)
  Sender: FDA-Public Use
  Company Number: US-JNJFOC-20040100499

PATIENT
  Age: 51 Year
  Sex: Female
  Weight: 83.9154 kg

DRUGS (7)
  1. REMICADE [Suspect]
     Indication: RHEUMATOID ARTHRITIS
     Dosage: 500 MG
     Dates: start: 20040102, end: 20040102
  2. ARAVA [Concomitant]
  3. BUSPAR [Concomitant]
  4. PROZAC [Concomitant]
  5. SPIRONLACTONE (SPIRONOLACTONE) [Concomitant]
  6. LASIX [Concomitant]
  7. NAPROXEN [Concomitant]

REACTIONS (2)
  - EPISTAXIS [None]
  - THROMBOCYTOPENIA [None]
